FAERS Safety Report 25336045 (Version 1)
Quarter: 2025Q2

REPORT INFORMATION
  Report Type: Spontaneous
  Country: US (occurrence: US)
  Receive Date: 20250520
  Receipt Date: 20250520
  Transmission Date: 20250716
  Serious: Yes (Hospitalization, Other)
  Sender: MANNKIND
  Company Number: US-MANNKIND CORP-2025MK000014

PATIENT
  Sex: Female

DRUGS (1)
  1. AFREZZA [Suspect]
     Active Substance: INSULIN HUMAN
     Indication: Type 1 diabetes mellitus
     Dates: start: 2018

REACTIONS (1)
  - Diabetic ketoacidosis [Recovered/Resolved]

NARRATIVE: CASE EVENT DATE: 20250415
